FAERS Safety Report 5263761-8 (Version None)
Quarter: 2007Q1

REPORT INFORMATION
  Report Type: 
  Country: None (occurrence: None)
  Receive Date: 20061213
  Receipt Date: 20031106
  Transmission Date: 20070707
  Serious: Yes (Other)
  Sender: FDA-Public Use
  Company Number: 2003UW12568

PATIENT
  Age: 74 Year
  Sex: Female
  Weight: 58.514 kg

DRUGS (15)
  1. IRESSA [Suspect]
     Indication: NON-SMALL CELL LUNG CANCER
     Dosage: 250 MG QD PO
     Route: 048
     Dates: start: 20030918
  2. VASOTEC [Concomitant]
  3. ASPIRIN [Concomitant]
  4. CARDIZEM [Concomitant]
  5. LASIX [Concomitant]
  6. CLONIDINE [Concomitant]
  7. CALCIUM [Concomitant]
  8. MULTI-VITAMIN [Concomitant]
  9. NAVELBINE [Concomitant]
  10. TAXOTERE [Concomitant]
  11. DECADRON [Concomitant]
  12. ATIVAN [Concomitant]
  13. PERCOCET [Concomitant]
  14. CLARINEX [Concomitant]
  15. CHEMOTHERAPY [Concomitant]

REACTIONS (9)
  - ARTHRALGIA [None]
  - DIARRHOEA [None]
  - DRY SKIN [None]
  - FEELING COLD [None]
  - KERATOCONJUNCTIVITIS SICCA [None]
  - NAUSEA [None]
  - RENAL FAILURE [None]
  - TREMOR [None]
  - VOMITING [None]
